FAERS Safety Report 7391933-5 (Version None)
Quarter: 2011Q2

REPORT INFORMATION
  Report Type: 
  Country: None (occurrence: None)
  Receive Date: 20110404
  Receipt Date: 20110329
  Transmission Date: 20111010
  Serious: Yes (Hospitalization, Other)
  Sender: FDA-Public Use
  Company Number: IT-GENZYME-CAMP-1001314

PATIENT
  Sex: Male
  Weight: 70 kg

DRUGS (44)
  1. CAMPATH [Suspect]
     Dosage: 10 MG ON DAY 0
     Route: 058
  2. DOXORUBICIN [Suspect]
     Dosage: 90 MG, UNK
     Route: 042
  3. VINCRISTINE [Suspect]
     Dosage: 2 MG, UNK
     Route: 042
  4. PREDNISONE [Suspect]
     Dosage: 350 MG, UNK
     Route: 042
  5. CAMPATH [Suspect]
     Dosage: 10 MG ON DAY 0
     Route: 058
  6. CYCLOPHOSPHAMIDE [Suspect]
     Dosage: 1350 MG, UNK
     Route: 042
  7. DOXORUBICIN [Suspect]
     Dosage: 90 MG, UNK
     Route: 042
  8. DOXORUBICIN [Suspect]
     Dosage: 90 MG, UNK
     Route: 042
     Dates: start: 20101013
  9. VINCRISTINE [Suspect]
     Indication: PERIPHERAL T-CELL LYMPHOMA UNSPECIFIED
     Dosage: 2 MG, UNK
     Route: 042
  10. PREDNISONE [Suspect]
     Dosage: 350 MG, UNK
     Route: 042
  11. PREDNISONE [Suspect]
     Dosage: 350 MG, UNK
     Route: 042
  12. CAMPATH [Suspect]
     Dosage: 10 MG ON DAY 0
     Route: 058
  13. VINCRISTINE [Suspect]
     Dosage: 2 MG, UNK
     Route: 042
  14. CAMPATH [Suspect]
     Dosage: 10 MG ON DAY 0
     Route: 058
     Dates: start: 20100917, end: 20100917
  15. CYCLOPHOSPHAMIDE [Suspect]
     Dosage: 1350 MG, UNK
     Route: 042
  16. CYCLOPHOSPHAMIDE [Suspect]
     Dosage: 1350 MG, UNK
     Route: 042
  17. CYCLOPHOSPHAMIDE [Suspect]
     Dosage: 1350 MG, UNK
     Route: 042
  18. CYCLOPHOSPHAMIDE [Suspect]
     Dosage: 1350 MG, UNK
     Route: 042
     Dates: start: 20101013
  19. DOXORUBICIN [Suspect]
     Dosage: 90 MG, UNK
     Route: 042
  20. VINCRISTINE [Suspect]
     Dosage: 2 MG, UNK
     Route: 042
  21. CAMPATH [Suspect]
     Dosage: 10 MG ON DAY 0
     Route: 058
  22. CAMPATH [Suspect]
     Dosage: 10 MG ON DAY 0
     Route: 058
     Dates: start: 20101013, end: 20101013
  23. DOXORUBICIN [Suspect]
     Indication: PERIPHERAL T-CELL LYMPHOMA UNSPECIFIED
     Dosage: 90 MG, UNK
     Route: 042
  24. VINCRISTINE [Suspect]
     Dosage: 2 MG, UNK
     Route: 042
  25. PREDNISONE [Suspect]
     Dosage: 350 MG, UNK
     Route: 042
     Dates: start: 20101013
  26. ZEFFIX [Concomitant]
     Indication: PRODUCT USED FOR UNKNOWN INDICATION
     Dosage: UNK UNK, UNK
     Route: 065
  27. CAMPATH [Suspect]
     Dosage: 10 MG ON DAY 0
     Route: 058
  28. CAMPATH [Suspect]
     Dosage: 10 MG ON DAY 0
     Route: 058
  29. DOXORUBICIN [Suspect]
     Dosage: 90 MG, UNK
     Route: 042
  30. DOXORUBICIN [Suspect]
     Dosage: 90 MG, UNK
     Route: 042
  31. PREDNISONE [Suspect]
     Dosage: 350 MG, UNK
     Route: 042
  32. ARANESP [Concomitant]
     Indication: PRODUCT USED FOR UNKNOWN INDICATION
     Dosage: UNK UNK, UNK
     Route: 065
  33. CAMPATH [Suspect]
     Indication: PERIPHERAL T-CELL LYMPHOMA UNSPECIFIED
     Dosage: 3 MG ON DAY -1
     Route: 042
     Dates: start: 20100329, end: 20100329
  34. CYCLOPHOSPHAMIDE [Suspect]
     Dosage: 1350 MG, UNK
     Route: 042
  35. VINCRISTINE [Suspect]
     Dosage: 2 MG, UNK
     Route: 042
  36. VINCRISTINE [Suspect]
     Dosage: 2 MG, UNK
     Route: 042
     Dates: start: 20100917
  37. VINCRISTINE [Suspect]
     Dosage: 2 MG, UNK
     Route: 042
     Dates: start: 20101013
  38. PREDNISONE [Suspect]
     Dosage: 350 MG, UNK
     Route: 042
  39. PREDNISONE [Suspect]
     Dosage: 350 MG, UNK
     Route: 042
     Dates: start: 20100917
  40. CAMPATH [Suspect]
     Dosage: 10 MG ON DAY 0
     Route: 042
  41. CYCLOPHOSPHAMIDE [Suspect]
     Indication: PERIPHERAL T-CELL LYMPHOMA UNSPECIFIED
     Dosage: 1350 MG, UNK
     Route: 042
  42. CYCLOPHOSPHAMIDE [Suspect]
     Dosage: 1350 MG, UNK
     Route: 042
     Dates: start: 20100917
  43. DOXORUBICIN [Suspect]
     Dosage: 90 MG, UNK
     Route: 042
     Dates: start: 20100917
  44. PREDNISONE [Suspect]
     Indication: PERIPHERAL T-CELL LYMPHOMA UNSPECIFIED
     Dosage: 350 MG, UNK
     Route: 042

REACTIONS (3)
  - ATRIAL FIBRILLATION [None]
  - RENAL FAILURE ACUTE [None]
  - ACUTE RESPIRATORY DISTRESS SYNDROME [None]
